FAERS Safety Report 24529548 (Version 3)
Quarter: 2025Q3

REPORT INFORMATION
  Report Type: Report from Study
  Country: JP (occurrence: JP)
  Receive Date: 20241021
  Receipt Date: 20250809
  Transmission Date: 20251020
  Serious: Yes (Death, Hospitalization, Other)
  Sender: ALEXION PHARMACEUTICALS
  Company Number: JP-ASTRAZENECA-240079964_013120_P_1

PATIENT
  Age: 75 Year
  Sex: Male
  Weight: 45 kg

DRUGS (2)
  1. DURVALUMAB [Suspect]
     Active Substance: DURVALUMAB
     Indication: Hepatocellular carcinoma
  2. TREMELIMUMAB [Suspect]
     Active Substance: TREMELIMUMAB
     Indication: Hepatocellular carcinoma

REACTIONS (4)
  - Diarrhoea [Unknown]
  - Liver abscess [Unknown]
  - Hepatorenal failure [Unknown]
  - Death [Fatal]

NARRATIVE: CASE EVENT DATE: 20230623
